FAERS Safety Report 10934475 (Version 2)
Quarter: 2015Q3

REPORT INFORMATION
  Report Type: Spontaneous
  Country: US (occurrence: US)
  Receive Date: 20150320
  Receipt Date: 20150701
  Transmission Date: 20151125
  Serious: Yes (Other)
  Sender: FDA-Public Use
  Company Number: US-PFIZER INC-2015094184

PATIENT
  Age: 71 Year
  Sex: Female
  Weight: 80 kg

DRUGS (5)
  1. CELEBREX [Suspect]
     Active Substance: CELECOXIB
     Indication: RHEUMATOID ARTHRITIS
     Dosage: 20 MG, 1X/DAY
     Dates: start: 201401, end: 20150201
  2. BUPROPION HCL XL [Concomitant]
     Active Substance: BUPROPION HYDROCHLORIDE
     Indication: DEPRESSION
     Dosage: 300 MG
     Dates: start: 2011
  3. CLONAZEPAM. [Concomitant]
     Active Substance: CLONAZEPAM
     Indication: SEDATIVE THERAPY
     Dosage: 0.5MG 2 TABLETS TAKEN WHEN GO TO BED
     Dates: start: 2011
  4. CELEBREX [Suspect]
     Active Substance: CELECOXIB
     Indication: ARTHRITIS
  5. NATURE-THROID [Concomitant]
     Active Substance: THYROID, PORCINE
     Dosage: 81.5MG TABLET TAKEN EACH MORNING
     Dates: start: 2010

REACTIONS (5)
  - Dysstasia [Not Recovered/Not Resolved]
  - Drug effect incomplete [Unknown]
  - Intervertebral disc protrusion [Unknown]
  - Fibromyalgia [Not Recovered/Not Resolved]
  - Pain [Not Recovered/Not Resolved]

NARRATIVE: CASE EVENT DATE: 201411
